FAERS Safety Report 7292568-5 (Version None)
Quarter: 2011Q1

REPORT INFORMATION
  Report Type: 
  Country: None (occurrence: None)
  Receive Date: 20110215
  Receipt Date: 20110215
  Transmission Date: 20110831
  Serious: No
  Sender: FDA-Public Use
  Company Number: None

PATIENT

DRUGS (1)
  1. TRIAD ALCOHOL PREP PADS [Suspect]

REACTIONS (7)
  - NAUSEA [None]
  - DIARRHOEA [None]
  - INJECTION SITE RASH [None]
  - HEADACHE [None]
  - ABDOMINAL PAIN [None]
  - CHEST PAIN [None]
  - VOMITING [None]
